FAERS Safety Report 5942684-2 (Version None)
Quarter: 2008Q4

REPORT INFORMATION
  Report Type: 
  Country: None (occurrence: None)
  Receive Date: 20081106
  Receipt Date: 20081030
  Transmission Date: 20090506
  Serious: Yes (Death, Other)
  Sender: FDA-Public Use
  Company Number: GB-RANBAXY-2008RR-17487

PATIENT
  Age: 58 Year
  Sex: Female
  Weight: 82 kg

DRUGS (5)
  1. OLANZAPINE [Concomitant]
     Indication: BIPOLAR DISORDER
     Dosage: 15 MG, QD
     Route: 048
  2. CODEINE SUL TAB [Suspect]
     Indication: DIARRHOEA
     Dosage: 60 MG, BID
     Route: 048
     Dates: start: 20071029, end: 20071030
  3. CODEINE SUL TAB [Suspect]
     Indication: IRRITABLE BOWEL SYNDROME
     Dosage: 30 MG, QID
  4. LEVOTHYROXINE SODIUM [Concomitant]
     Indication: HYPOTHYROIDISM
     Dosage: UNK
     Dates: start: 20040101
  5. VALPROIC ACID [Concomitant]
     Indication: BIPOLAR DISORDER
     Dosage: 500 MG, UNK
     Route: 048

REACTIONS (4)
  - DRUG INTERACTION [None]
  - RESPIRATORY DEPRESSION [None]
  - SEDATION [None]
  - SOMNOLENCE [None]
